FAERS Safety Report 9981361 (Version 1)
Quarter: 2014Q1

REPORT INFORMATION
  Report Type: Spontaneous
  Country: US (occurrence: None)
  Receive Date: 20140306
  Receipt Date: 20140306
  Transmission Date: 20141002
  Serious: Yes (Other)
  Sender: FDA-Public Use
  Company Number: None

PATIENT
  Age: 58 Year
  Sex: Female
  Weight: 62.6 kg

DRUGS (1)
  1. MIRVASO 0.33% GALDERMA [Suspect]
     Indication: ROSACEA
     Dosage: APPLIED TO A SURFACE, USUALLY THE SKIN
     Dates: start: 20131025, end: 20140305

REACTIONS (3)
  - Flushing [None]
  - Feeling hot [None]
  - Butterfly rash [None]
